FAERS Safety Report 17565802 (Version 3)
Quarter: 2020Q2

REPORT INFORMATION
  Report Type: Spontaneous
  Country: JP (occurrence: JP)
  Receive Date: 20200320
  Receipt Date: 20200413
  Transmission Date: 20200713
  Serious: Yes (Hospitalization, Other)
  Sender: FDA-Public Use
  Company Number: JP-PFIZER INC-2020115246

PATIENT
  Age: 25 Year
  Sex: Female
  Weight: 50 kg

DRUGS (2)
  1. LAMOTRIGINE. [Suspect]
     Active Substance: LAMOTRIGINE
     Dosage: UNK
     Dates: end: 202003
  2. EFFEXOR [Suspect]
     Active Substance: VENLAFAXINE HYDROCHLORIDE
     Dosage: 150 MG, DAILY
     Dates: end: 202003

REACTIONS (5)
  - Withdrawal syndrome [Unknown]
  - Altered state of consciousness [Recovered/Resolved]
  - Rhabdomyolysis [Recovered/Resolved]
  - Poisoning [Unknown]
  - Overdose [Unknown]

NARRATIVE: CASE EVENT DATE: 202003
